FAERS Safety Report 10096814 (Version 1)
Quarter: 2014Q2

REPORT INFORMATION
  Report Type: Spontaneous
  Country: US (occurrence: US)
  Receive Date: 20140422
  Receipt Date: 20140422
  Transmission Date: 20141212
  Serious: Yes (Life-Threatening)
  Sender: FDA-Public Use
  Company Number: US-BRACCO-010738

PATIENT
  Age: 75 Year
  Sex: Male
  Weight: 91 kg

DRUGS (9)
  1. MULTIHANCE [Suspect]
     Indication: ANGIOGRAM
     Route: 042
     Dates: start: 20140331, end: 20140331
  2. NORVASC [Concomitant]
  3. MULTIHANCE [Suspect]
     Indication: NUCLEAR MAGNETIC RESONANCE IMAGING BRAIN
     Route: 042
     Dates: start: 20140331, end: 20140331
  4. ECOTRIN [Concomitant]
  5. TENORMIN [Concomitant]
  6. PLAVIX [Concomitant]
  7. GLUCOPHAGE [Concomitant]
  8. COZAAR [Concomitant]
  9. NOVOLOG [Concomitant]

REACTIONS (2)
  - Cardiac arrest [Recovered/Resolved]
  - Anaphylactic reaction [Recovered/Resolved]
